FAERS Safety Report 5403211-1 (Version None)
Quarter: 2007Q3

REPORT INFORMATION
  Report Type: 
  Country: None (occurrence: None)
  Receive Date: 20070730
  Receipt Date: 20070717
  Transmission Date: 20080115
  Serious: Yes (Death, Life-Threatening, Hospitalization)
  Sender: FDA-Public Use
  Company Number: PRI050412007044

PATIENT
  Age: 53 Year
  Sex: Female
  Weight: 63.5036 kg

DRUGS (6)
  1. BEVACIZUMAB [Suspect]
     Indication: COLON CANCER METASTATIC
     Dosage: 5MG/KG Q2W IV
     Route: 042
     Dates: start: 20070212, end: 20070611
  2. COUMADIN [Suspect]
     Indication: ANTICOAGULANT THERAPY
     Dosage: 4MG QD PO
     Route: 048
     Dates: start: 20070401
  3. PROZAC [Concomitant]
  4. SYNTHROID [Concomitant]
  5. VICODIN [Concomitant]
  6. COMPAZINE [Concomitant]

REACTIONS (10)
  - ACUTE RESPIRATORY DISTRESS SYNDROME [None]
  - ASTHENIA [None]
  - DEHYDRATION [None]
  - ILEUS [None]
  - INTESTINAL PERFORATION [None]
  - NAUSEA [None]
  - ORAL INTAKE REDUCED [None]
  - SEPSIS [None]
  - SMALL INTESTINAL OBSTRUCTION [None]
  - VOMITING [None]
